FAERS Safety Report 24364815 (Version 1)
Quarter: 2024Q3

REPORT INFORMATION
  Report Type: Spontaneous
  Country: JP (occurrence: JP)
  Receive Date: 20240926
  Receipt Date: 20240926
  Transmission Date: 20241017
  Serious: Yes (Hospitalization)
  Sender: ROCHE
  Company Number: JP-CHUGAI-2024032846

PATIENT
  Age: 2 Decade
  Sex: Male

DRUGS (1)
  1. HEMLIBRA [Suspect]
     Active Substance: EMICIZUMAB-KXWH
     Indication: Haemophilia A without inhibitors
     Dosage: 150 MILLIGRAM, ONCE/2WEEKS
     Route: 050

REACTIONS (2)
  - Haemorrhage [Not Recovered/Not Resolved]
  - Haemophilic pseudotumour [Not Recovered/Not Resolved]
